FAERS Safety Report 20625279 (Version 2)
Quarter: 2022Q1

REPORT INFORMATION
  Report Type: Spontaneous
  Country: US (occurrence: US)
  Receive Date: 20220323
  Receipt Date: 20220330
  Transmission Date: 20220423
  Serious: Yes (Hospitalization, Other)
  Sender: FDA-Public Use
  Company Number: US-Hikma Pharmaceuticals USA Inc.-US-H14001-22-00824

PATIENT
  Sex: Female

DRUGS (1)
  1. METHAMPHETAMINE [Suspect]
     Active Substance: METHAMPHETAMINE
     Indication: Product used for unknown indication
     Dosage: UNKNOWN
     Route: 065

REACTIONS (17)
  - Eating disorder [Unknown]
  - Drug abuse [Unknown]
  - Off label use [Unknown]
  - Psychotic symptom [Unknown]
  - Paranoia [Unknown]
  - Poisoning [Unknown]
  - Sexual abuse [Unknown]
  - Drug dependence [Unknown]
  - Body dysmorphic disorder [Unknown]
  - Psychomotor hyperactivity [Unknown]
  - Speech disorder [Unknown]
  - Eye movement disorder [Unknown]
  - Anxiety [Unknown]
  - Thinking abnormal [Unknown]
  - Withdrawal syndrome [Unknown]
  - Irritability [Unknown]
  - Aggression [Unknown]
